FAERS Safety Report 10061069 (Version 2)
Quarter: 2014Q2

REPORT INFORMATION
  Report Type: Spontaneous
  Country: US (occurrence: US)
  Receive Date: 20140405
  Receipt Date: 20140405
  Transmission Date: 20141212
  Serious: Yes (Death)
  Sender: FDA-Public Use
  Company Number: US-GE HEALTHCARE MEDICAL DIAGNOSTICS-OSCN-PR-0912S-0534

PATIENT
  Age: 74 Year
  Sex: Male

DRUGS (8)
  1. MAGNEVIST [Suspect]
     Indication: PRODUCT USED FOR UNKNOWN INDICATION
     Route: 042
     Dates: start: 20060706, end: 20060706
  2. MAGNEVIST [Suspect]
     Route: 042
     Dates: start: 20060710, end: 20060710
  3. MAGNEVIST [Suspect]
     Route: 042
     Dates: start: 20060713, end: 20060713
  4. MAGNEVIST [Suspect]
     Route: 042
     Dates: start: 20061122, end: 20061122
  5. MAGNEVIST [Suspect]
     Route: 042
     Dates: start: 20061214, end: 20061214
  6. MAGNEVIST [Suspect]
     Route: 042
     Dates: start: 20061219, end: 20061219
  7. MAGNEVIST [Suspect]
     Route: 042
     Dates: start: 20061220, end: 20061220
  8. MAGNEVIST [Suspect]
     Route: 042
     Dates: start: 20061224, end: 20061224

REACTIONS (1)
  - Nephrogenic systemic fibrosis [Fatal]
